FAERS Safety Report 8303791-2 (Version None)
Quarter: 2012Q2

REPORT INFORMATION
  Report Type: 
  Country: None (occurrence: None)
  Receive Date: 20120423
  Receipt Date: 20120410
  Transmission Date: 20120825
  Serious: Yes (Hospitalization)
  Sender: FDA-Public Use
  Company Number: PHHY2011KR107296

PATIENT
  Sex: Female
  Weight: 47 kg

DRUGS (1)
  1. EXJADE [Suspect]
     Indication: APLASTIC ANAEMIA
     Dosage: 1000 MG
     Route: 048
     Dates: start: 20070709

REACTIONS (2)
  - LOWER LIMB FRACTURE [None]
  - FALL [None]
